FAERS Safety Report 12694479 (Version 1)
Quarter: 2016Q3

REPORT INFORMATION
  Report Type: Spontaneous
  Country: GB (occurrence: GB)
  Receive Date: 20160829
  Receipt Date: 20160829
  Transmission Date: 20161109
  Serious: Yes (Other)
  Sender: FDA-Public Use
  Company Number: GB-ASTRAZENECA-2016SE18217

PATIENT
  Age: 23448 Day
  Sex: Male
  Weight: 78.4 kg

DRUGS (1)
  1. FORXIGA [Suspect]
     Active Substance: DAPAGLIFLOZIN
     Indication: DIABETES MELLITUS
     Route: 048
     Dates: start: 20150810, end: 20160211

REACTIONS (2)
  - Balanitis candida [Not Recovered/Not Resolved]
  - Phimosis [Not Recovered/Not Resolved]

NARRATIVE: CASE EVENT DATE: 20160330
